FAERS Safety Report 10915957 (Version 1)
Quarter: 2015Q1

REPORT INFORMATION
  Report Type: Spontaneous
  Country: AT (occurrence: AT)
  Receive Date: 20150316
  Receipt Date: 20150316
  Transmission Date: 20150721
  Serious: Yes (Other)
  Sender: FDA-Public Use
  Company Number: AT-MYLANLABS-2015M1008038

PATIENT

DRUGS (3)
  1. CEFALEXIN [Concomitant]
     Active Substance: CEPHALEXIN
     Indication: IMPLANT SITE INFECTION
     Dosage: 3X1G
     Route: 048
  2. RIFAMPIN. [Suspect]
     Active Substance: RIFAMPIN
     Indication: IMPLANT SITE INFECTION
     Dosage: 2X600MG
     Route: 048
  3. FLUCLOXACILLIN [Concomitant]
     Active Substance: FLUCLOXACILLIN
     Indication: IMPLANT SITE INFECTION
     Dosage: 3X2G
     Route: 042

REACTIONS (2)
  - Pathogen resistance [Unknown]
  - Staphylococcal infection [Unknown]
